FAERS Safety Report 5200054-9 (Version None)
Quarter: 2007Q1

REPORT INFORMATION
  Report Type: 
  Country: None (occurrence: None)
  Receive Date: 20070105
  Receipt Date: 20061227
  Transmission Date: 20070707
  Serious: Yes (Other)
  Sender: FDA-Public Use
  Company Number: FI-JNJFOC-20061206491

PATIENT
  Age: 87 Year
  Sex: Female

DRUGS (1)
  1. REMINYL [Suspect]
     Indication: DRUG USE FOR UNKNOWN INDICATION
     Route: 065
     Dates: start: 20061213

REACTIONS (3)
  - EXPIRED DRUG ADMINISTERED [None]
  - HAEMATEMESIS [None]
  - NAUSEA [None]
